FAERS Safety Report 16765176 (Version 1)
Quarter: 2019Q3

REPORT INFORMATION
  Report Type: Spontaneous
  Country: HR (occurrence: HR)
  Receive Date: 20190903
  Receipt Date: 20190903
  Transmission Date: 20191005
  Serious: Yes (Other)
  Sender: FDA-Public Use
  Company Number: HR-TEVA-2019-HR-1100269

PATIENT
  Sex: Male

DRUGS (5)
  1. PHEMITON [Suspect]
     Active Substance: MEPHOBARBITAL
     Dosage: 300 MG
     Route: 048
     Dates: start: 20190626, end: 20190626
  2. LAMOTRIGIN [Suspect]
     Active Substance: LAMOTRIGINE
     Route: 048
     Dates: start: 20190626, end: 20190626
  3. PRAZINE (PROMAZINE HYDROCHLORIDE) [Suspect]
     Active Substance: PROMAZINE HYDROCHLORIDE
     Dosage: 2000 MG
     Route: 048
     Dates: start: 20190626, end: 20190626
  4. PHENOBARBITON PLIVA [Suspect]
     Active Substance: PHENOBARBITAL
     Dosage: 300 MG
     Route: 048
     Dates: start: 20190626, end: 20190626
  5. RIVOTRIL [Suspect]
     Active Substance: CLONAZEPAM
     Route: 048
     Dates: start: 20190626, end: 20190626

REACTIONS (4)
  - Intentional overdose [Unknown]
  - Electrocardiogram change [Unknown]
  - Suicide attempt [Unknown]
  - Somnolence [Unknown]

NARRATIVE: CASE EVENT DATE: 20190626
